FAERS Safety Report 24201058 (Version 2)
Quarter: 2024Q3

REPORT INFORMATION
  Report Type: Other
  Country: FR (occurrence: FR)
  Receive Date: 20240812
  Receipt Date: 20240826
  Transmission Date: 20241017
  Serious: Yes (Other)
  Sender: Karo Pharma
  Company Number: FR-Karo Pharma-2160305

PATIENT
  Age: 64 Year
  Sex: Female

DRUGS (4)
  1. TERBINAFINE [Suspect]
     Active Substance: TERBINAFINE
     Indication: Product used for unknown indication
  2. CYCLOSPORINE [Suspect]
     Active Substance: CYCLOSPORINE
  3. TERBINAFINE [Suspect]
     Active Substance: TERBINAFINE
  4. PREDNISOLONE [Concomitant]
     Active Substance: PREDNISOLONE

REACTIONS (2)
  - Renal impairment [Unknown]
  - Drug interaction [Unknown]
